FAERS Safety Report 7455128-9 (Version None)
Quarter: 2011Q2

REPORT INFORMATION
  Report Type: 
  Country: None (occurrence: None)
  Receive Date: 20110503
  Receipt Date: 20110419
  Transmission Date: 20111010
  Serious: Yes (Hospitalization)
  Sender: FDA-Public Use
  Company Number: AU-MYLANLABS-2011S1007979

PATIENT
  Age: 79 Year
  Sex: Female

DRUGS (6)
  1. KINSON [Suspect]
     Indication: PARKINSON'S DISEASE
  2. AVAPRO [Concomitant]
  3. ATENOLOL [Concomitant]
  4. KINSON [Suspect]
  5. NATRILIX [Concomitant]
     Dates: end: 20110418
  6. FOSAMAX [Concomitant]

REACTIONS (1)
  - HYPONATRAEMIA [None]
